FAERS Safety Report 5721649-X (Version None)
Quarter: 2008Q2

REPORT INFORMATION
  Report Type: 
  Country: None (occurrence: None)
  Receive Date: 20080429
  Receipt Date: 20080416
  Transmission Date: 20081010
  Serious: Yes (Hospitalization, Other)
  Sender: FDA-Public Use
  Company Number: US-CVT-080017

PATIENT

DRUGS (9)
  1. RANEXA [Suspect]
     Indication: ANGINA PECTORIS
     Dosage: 500 MG, BID
     Route: 048
     Dates: start: 20080216, end: 20080221
  2. PLAVIX [Concomitant]
     Dosage: 75 MG, UNK
     Route: 048
  3. METOPROLOL                         /00376901/ [Concomitant]
     Dosage: 50 MG, BID
     Route: 048
  4. ASPIRIN [Concomitant]
     Dosage: 81 MG, QD
     Route: 048
  5. NORVASC [Concomitant]
     Dosage: 5 MG, BID
     Route: 048
  6. LASIX [Concomitant]
     Dosage: 40 MG, BID
     Route: 048
  7. ZESTRIL [Concomitant]
     Dosage: 5 MG, QD
     Route: 048
  8. INSULIN                            /00030501/ [Concomitant]
  9. EPOGEN [Concomitant]

REACTIONS (4)
  - FATIGUE [None]
  - RENAL FAILURE ACUTE [None]
  - TONGUE AMYLOIDOSIS [None]
  - URINARY TRACT INFECTION BACTERIAL [None]
